FAERS Safety Report 7066512-X (Version None)
Quarter: 2010Q4

REPORT INFORMATION
  Report Type: 
  Country: None (occurrence: None)
  Receive Date: 20101027
  Receipt Date: 20100506
  Transmission Date: 20110411
  Serious: No
  Sender: FDA-Public Use
  Company Number: US-WYE-H15018410

PATIENT
  Sex: Female
  Weight: 56.3 kg

DRUGS (3)
  1. PREMPRO [Suspect]
     Indication: HORMONE REPLACEMENT THERAPY
     Dosage: ^1.25 MG/10 MG,^ 1 TABLET DAILY
     Route: 048
     Dates: start: 20080101
  2. DEPAKOTE [Concomitant]
  3. ZOLOFT [Concomitant]

REACTIONS (2)
  - ANKLE FRACTURE [None]
  - OSTEOPENIA [None]
